FAERS Safety Report 15265251 (Version 1)
Quarter: 2018Q3

REPORT INFORMATION
  Report Type: Spontaneous
  Country: FR (occurrence: FR)
  Receive Date: 20180810
  Receipt Date: 20180810
  Transmission Date: 20181010
  Serious: Yes (Hospitalization)
  Sender: FDA-Public Use
  Company Number: FR-009507513-1808FRA002249

PATIENT
  Age: 81 Year
  Sex: Female

DRUGS (2)
  1. ZOCOR [Suspect]
     Active Substance: SIMVASTATIN
     Dosage: UNK
     Route: 048
  2. ZOCOR [Suspect]
     Active Substance: SIMVASTATIN
     Dosage: UNK
     Route: 048
     Dates: start: 20180731

REACTIONS (3)
  - Arterial occlusive disease [Unknown]
  - Hypoglycaemia [Unknown]
  - Malaise [Unknown]

NARRATIVE: CASE EVENT DATE: 201802
